FAERS Safety Report 20108288 (Version 3)
Quarter: 2022Q2

REPORT INFORMATION
  Report Type: Report from Study
  Country: DE (occurrence: DE)
  Receive Date: 20211124
  Receipt Date: 20220630
  Transmission Date: 20220721
  Serious: Yes (Other)
  Sender: FDA-Public Use
  Company Number: DE-TAKEDA-2021TUS055433

PATIENT
  Age: 49 Year
  Sex: Female

DRUGS (17)
  1. TEDUGLUTIDE [Suspect]
     Active Substance: TEDUGLUTIDE
     Indication: Short-bowel syndrome
     Dosage: 2.50 MILLIGRAM, QD
     Route: 042
     Dates: start: 20180104, end: 201906
  2. TEDUGLUTIDE [Suspect]
     Active Substance: TEDUGLUTIDE
     Indication: Short-bowel syndrome
     Dosage: 2.50 MILLIGRAM, QD
     Route: 042
     Dates: start: 20180104, end: 201906
  3. TEDUGLUTIDE [Suspect]
     Active Substance: TEDUGLUTIDE
     Indication: Short-bowel syndrome
     Dosage: 2.50 MILLIGRAM, QD
     Route: 042
     Dates: start: 20180104, end: 201906
  4. TEDUGLUTIDE [Suspect]
     Active Substance: TEDUGLUTIDE
     Indication: Short-bowel syndrome
     Dosage: 2.50 MILLIGRAM, QD
     Route: 042
     Dates: start: 20180104, end: 201906
  5. TEDUGLUTIDE [Suspect]
     Active Substance: TEDUGLUTIDE
     Dosage: 1.25 MILLIGRAM, QD
     Route: 042
     Dates: start: 201906
  6. TEDUGLUTIDE [Suspect]
     Active Substance: TEDUGLUTIDE
     Dosage: 1.25 MILLIGRAM, QD
     Route: 042
     Dates: start: 201906
  7. TEDUGLUTIDE [Suspect]
     Active Substance: TEDUGLUTIDE
     Dosage: 1.25 MILLIGRAM, QD
     Route: 042
     Dates: start: 201906
  8. TEDUGLUTIDE [Suspect]
     Active Substance: TEDUGLUTIDE
     Dosage: 1.25 MILLIGRAM, QD
     Route: 042
     Dates: start: 201906
  9. IRON [Concomitant]
     Active Substance: IRON
     Indication: Iron deficiency
     Dosage: 30 MILLIGRAM, BID
     Dates: start: 20210602
  10. IRON [Concomitant]
     Active Substance: IRON
     Dosage: 100 MILLIGRAM, BID
     Route: 048
  11. METAMIZOL [Concomitant]
     Active Substance: METAMIZOLE SODIUM
     Indication: Pain
     Dosage: 500 MILLIGRAM
     Route: 048
     Dates: start: 202008
  12. MORPHINE SULFATE [Concomitant]
     Active Substance: MORPHINE SULFATE
     Indication: Pain
     Dosage: 20 MILLIGRAM
     Route: 065
     Dates: start: 202008
  13. CERTOPARIN SODIUM [Concomitant]
     Active Substance: CERTOPARIN SODIUM
     Indication: Thrombosis prophylaxis
     Dosage: 8000 INTERNATIONAL UNIT, QD
     Route: 058
     Dates: start: 202008, end: 202008
  14. FOSFOMYCIN AL [Concomitant]
     Indication: Urinary tract infection
     Dosage: 3 GRAM, QD
     Route: 048
     Dates: start: 20211109, end: 20211112
  15. TROMETHAMINE [Concomitant]
     Active Substance: TROMETHAMINE
     Indication: Urinary tract infection
     Dosage: 3 GRAM, QD
     Route: 047
     Dates: start: 20211109, end: 20211112
  16. LOPERAMIDE [Concomitant]
     Active Substance: LOPERAMIDE
     Indication: Diarrhoea
     Dosage: 2 MILLIGRAM, QID
     Route: 048
     Dates: start: 20210627, end: 20210730
  17. CLOPIDOGREL [Concomitant]
     Active Substance: CLOPIDOGREL BISULFATE
     Indication: Haemostasis
     Dosage: 75 MILLIGRAM, QD
     Route: 048
     Dates: start: 20210627, end: 20210730

REACTIONS (4)
  - Chest wall haematoma [Recovered/Resolved]
  - Subclavian artery stenosis [Not Recovered/Not Resolved]
  - Oedema [Not Recovered/Not Resolved]
  - Hypoglycaemia [Not Recovered/Not Resolved]

NARRATIVE: CASE EVENT DATE: 20210602
